FAERS Safety Report 17142444 (Version 2)
Quarter: 2025Q3

REPORT INFORMATION
  Report Type: Spontaneous
  Country: EU (occurrence: EU)
  Receive Date: 20191211
  Receipt Date: 20250724
  Transmission Date: 20251020
  Serious: Yes (Hospitalization)
  Sender: ELI LILLY AND COMPANY
  Company Number: EU-JGL-ICSR000907

PATIENT
  Age: 67 Year
  Sex: Female

DRUGS (13)
  1. OLANZAPINE [Suspect]
     Active Substance: OLANZAPINE
     Indication: Major depression
     Dosage: 5 MG, DAILY
     Route: 065
  2. OLANZAPINE [Suspect]
     Active Substance: OLANZAPINE
     Dosage: 10 MG, DAILY
     Route: 065
  3. OLANZAPINE [Suspect]
     Active Substance: OLANZAPINE
     Dosage: 5 MG, DAILY
     Route: 065
  4. DULOXETINE HYDROCHLORIDE [Suspect]
     Active Substance: DULOXETINE HYDROCHLORIDE
     Indication: Major depression
  5. DULOXETINE HYDROCHLORIDE [Suspect]
     Active Substance: DULOXETINE HYDROCHLORIDE
     Dosage: UNK UNK, DOSE UP TO 120 MG/DAY
     Route: 065
  6. DULOXETINE HYDROCHLORIDE [Suspect]
     Active Substance: DULOXETINE HYDROCHLORIDE
     Dosage: 90 MG, DAILY
     Route: 065
  7. CARBAMAZEPINE [Suspect]
     Active Substance: CARBAMAZEPINE
     Indication: Major depression
     Dosage: 200 MG, DAILY
     Route: 065
  8. CARBAMAZEPINE [Suspect]
     Active Substance: CARBAMAZEPINE
     Dosage: 400 MG, DAILY
     Route: 065
  9. OXAZEPAM [Suspect]
     Active Substance: OXAZEPAM
     Indication: Major depression
     Dosage: 60 MG, DAILY
     Route: 065
  10. OXAZEPAM [Suspect]
     Active Substance: OXAZEPAM
     Dosage: 45 MG, DAILY
     Route: 065
  11. FLURAZEPAM [Suspect]
     Active Substance: FLURAZEPAM HYDROCHLORIDE
     Indication: Major depression
     Dosage: 15 MG, DAILY
     Route: 065
  12. FLUVOXAMINE [Suspect]
     Active Substance: FLUVOXAMINE
     Indication: Major depression
     Dosage: 100 MG, DAILY
     Route: 065
  13. MAPROTILINE [Suspect]
     Active Substance: MAPROTILINE
     Indication: Major depression
     Dosage: 75 MG, DAILY
     Route: 065

REACTIONS (7)
  - Sedation [Unknown]
  - Somatic symptom disorder [Unknown]
  - Delusion [Unknown]
  - Depressive symptom [Unknown]
  - Insomnia [Unknown]
  - Cognitive disorder [Unknown]
  - Drug ineffective [Unknown]
